FAERS Safety Report 9704910 (Version 1)
Quarter: 2013Q4

REPORT INFORMATION
  Report Type: Not Available
  Country: US (occurrence: US)
  Receive Date: 20131122
  Receipt Date: 20131122
  Transmission Date: 20140711
  Serious: No
  Sender: FDA-Public Use
  Company Number: US-AMARIN PHARMA, INC.-2013AMR000050

PATIENT
  Age: 54 Year
  Sex: Male

DRUGS (6)
  1. VASCEPA [Suspect]
     Indication: BLOOD TRIGLYCERIDES INCREASED
     Route: 048
  2. VASCEPA [Suspect]
     Indication: BLOOD CHOLESTEROL ABNORMAL
  3. FENOFIBRATE [Concomitant]
     Indication: PRODUCT USED FOR UNKNOWN INDICATION
  4. OMEPRAZOLE [Concomitant]
     Indication: GASTROINTESTINAL DISORDER
  5. VITAMINS NOS [Concomitant]
     Indication: PRODUCT USED FOR UNKNOWN INDICATION
  6. VITAMIN B-12 [Concomitant]
     Indication: PRODUCT USED FOR UNKNOWN INDICATION

REACTIONS (4)
  - Hepatic enzyme increased [Unknown]
  - Pancreatic enzymes increased [Unknown]
  - Diarrhoea [Recovered/Resolved]
  - Abdominal pain [Recovered/Resolved]
